FAERS Safety Report 7315035-9 (Version None)
Quarter: 2011Q1

REPORT INFORMATION
  Report Type: 
  Country: None (occurrence: None)
  Receive Date: 20110225
  Receipt Date: 20100315
  Transmission Date: 20110831
  Serious: No
  Sender: FDA-Public Use
  Company Number: US-MYLANLABS-2010S1004563

PATIENT
  Age: 26 Year
  Sex: Female
  Weight: 51.71 kg

DRUGS (4)
  1. AMNESTEEM [Suspect]
     Indication: ACNE
     Route: 048
  2. FLUOXETINE [Concomitant]
  3. SYNTHROID [Concomitant]
  4. COZAAR [Concomitant]

REACTIONS (1)
  - MENSTRUAL DISORDER [None]
